FAERS Safety Report 16312708 (Version 1)
Quarter: 2019Q2

REPORT INFORMATION
  Report Type: Spontaneous
  Country: DE (occurrence: DE)
  Receive Date: 20190515
  Receipt Date: 20190515
  Transmission Date: 20190711
  Serious: Yes (Other)
  Sender: FDA-Public Use
  Company Number: DE-AUROBINDO-AUR-APL-2019-027051

PATIENT

DRUGS (1)
  1. LAMOTRIGINE. [Suspect]
     Active Substance: LAMOTRIGINE
     Indication: DEPRESSION
     Dosage: 1200 MILLIGRAM
     Route: 048
     Dates: start: 20190224, end: 20190308

REACTIONS (5)
  - Treatment noncompliance [Unknown]
  - Product administration error [Unknown]
  - Overdose [Unknown]
  - Cerebellar syndrome [Unknown]
  - Altered state of consciousness [Unknown]
